FAERS Safety Report 17866641 (Version 2)
Quarter: 2020Q2

REPORT INFORMATION
  Report Type: Report from Study
  Country: NL (occurrence: NL)
  Receive Date: 20200605
  Receipt Date: 20200617
  Transmission Date: 20200714
  Serious: Yes (Hospitalization, Other)
  Sender: FDA-Public Use
  Company Number: NL-JNJFOC-20200536721

PATIENT

DRUGS (3)
  1. METHOTREXATE. [Concomitant]
     Active Substance: METHOTREXATE
  2. THIOGUANINE [Concomitant]
     Active Substance: THIOGUANINE
  3. STELARA [Suspect]
     Active Substance: USTEKINUMAB
     Indication: CROHN^S DISEASE
     Route: 058

REACTIONS (30)
  - Lower respiratory tract infection [Unknown]
  - Alopecia [Unknown]
  - Upper respiratory tract infection [Unknown]
  - Erythema nodosum [Unknown]
  - Therapeutic response decreased [Unknown]
  - Fatigue [Unknown]
  - Infusion related reaction [Unknown]
  - Headache [Unknown]
  - Dry mouth [Unknown]
  - Hypomagnesaemia [Unknown]
  - Skin infection [Unknown]
  - Hospitalisation [Unknown]
  - Device related infection [Unknown]
  - Panic attack [Unknown]
  - Herpes zoster [Unknown]
  - Oral herpes [Unknown]
  - Intestinal operation [Unknown]
  - Uveitis [Unknown]
  - Influenza like illness [Unknown]
  - Gastrointestinal infection [Unknown]
  - Rash [Unknown]
  - Infection [Unknown]
  - Soft tissue infection [Unknown]
  - Arthralgia [Unknown]
  - Hypocalcaemia [Unknown]
  - Nervous system disorder [Unknown]
  - Vasculitis [Unknown]
  - Exposure during pregnancy [Unknown]
  - Aphthous ulcer [Unknown]
  - Urinary tract infection [Unknown]
